FAERS Safety Report 8882934 (Version 2)
Quarter: 2012Q4

REPORT INFORMATION
  Report Type: 
  Country: GB (occurrence: GB)
  Receive Date: 20121103
  Receipt Date: 20121127
  Transmission Date: 20130627
  Serious: Yes (Other)
  Sender: FDA-Public Use
  Company Number: GB-VERTEX PHARMACEUTICAL INC.-2012-024012

PATIENT
  Age: 67 Year
  Sex: Male
  Weight: 79 kg

DRUGS (4)
  1. INCIVO [Suspect]
     Indication: HEPATITIS C
     Dosage: Dosage Form: Tablet
     Route: 048
     Dates: start: 20120924
  2. CYCLIZINE [Interacting]
     Indication: NAUSEA
     Dosage: Dosage Form: Unspecified
     Route: 065
  3. ONDANSETRON [Concomitant]
     Indication: NAUSEA
     Dosage: Dosage Form: Unspecified
     Route: 065
  4. METOCLOPRAMIDE [Concomitant]
     Indication: NAUSEA
     Dosage: Dosage Form: Unspecified
     Route: 065

REACTIONS (4)
  - Drug interaction [Unknown]
  - Anaemia [Unknown]
  - Eating disorder [Unknown]
  - Nausea [Not Recovered/Not Resolved]
